FAERS Safety Report 6208611-8 (Version None)
Quarter: 2009Q2

REPORT INFORMATION
  Report Type: 
  Country: None (occurrence: None)
  Receive Date: 20090522
  Receipt Date: 20090305
  Transmission Date: 20091009
  Serious: No
  Sender: FDA-Public Use
  Company Number: 8043715

PATIENT
  Age: 56 Year
  Sex: Male
  Weight: 71.8 kg

DRUGS (2)
  1. CIMZIA [Suspect]
     Indication: COLITIS ULCERATIVE
     Dosage: 400 MG SC
     Route: 058
     Dates: start: 20081201
  2. LIALDA [Concomitant]

REACTIONS (4)
  - ABDOMINAL PAIN UPPER [None]
  - COLITIS ULCERATIVE [None]
  - DIARRHOEA [None]
  - PANCREATIC ENZYMES INCREASED [None]
